FAERS Safety Report 7956872-7 (Version None)
Quarter: 2011Q4

REPORT INFORMATION
  Report Type: 
  Country: None (occurrence: None)
  Receive Date: 20111205
  Receipt Date: 20111012
  Transmission Date: 20120403
  Serious: No
  Sender: FDA-Public Use
  Company Number: US-BAYER-2011-099200

PATIENT
  Age: 84 Year
  Sex: Female
  Weight: 66 kg

DRUGS (4)
  1. OMEPRAZOLE [Concomitant]
  2. NAPROXEN (ALEVE) [Suspect]
     Indication: BACK PAIN
     Dosage: 2 DF, UNK
     Route: 048
     Dates: start: 20111012
  3. LISINOPRIL [Concomitant]
  4. ASPIRIN [Concomitant]
     Dosage: 85 MG, UNK

REACTIONS (1)
  - BACK PAIN [None]
